FAERS Safety Report 25152042 (Version 1)
Quarter: 2025Q2

REPORT INFORMATION
  Report Type: Spontaneous
  Country: US (occurrence: US)
  Receive Date: 20250402
  Receipt Date: 20250402
  Transmission Date: 20250717
  Serious: No
  Sender: THEA PHARMA
  Company Number: US-THEA-2024001672

PATIENT
  Sex: Female

DRUGS (1)
  1. TAFLUPROST [Suspect]
     Active Substance: TAFLUPROST
     Indication: Glaucoma
     Dosage: BOTH EYES EACH EVENING
     Route: 047

REACTIONS (7)
  - Dry eye [Not Recovered/Not Resolved]
  - Dry skin [Not Recovered/Not Resolved]
  - Dry throat [Not Recovered/Not Resolved]
  - Cough [Not Recovered/Not Resolved]
  - Headache [Not Recovered/Not Resolved]
  - Scab [Not Recovered/Not Resolved]
  - Eyelid margin crusting [Not Recovered/Not Resolved]
